FAERS Safety Report 14964002 (Version 2)
Quarter: 2018Q2

REPORT INFORMATION
  Report Type: Spontaneous
  Country: US (occurrence: US)
  Receive Date: 20180601
  Receipt Date: 20180618
  Transmission Date: 20180711
  Serious: Yes (Other)
  Sender: FDA-Public Use
  Company Number: US-GLENMARK PHARMACEUTICALS-2018GMK035839

PATIENT
  Age: 81 Year
  Sex: Male

DRUGS (6)
  1. VORICONAZOLE. [Suspect]
     Active Substance: VORICONAZOLE
     Indication: CANDIDA ENDOPHTHALMITIS
     Dosage: 100 ?G, QD (FOR 2 DAYS)
     Route: 050
  2. AMPHOTERICIN B. [Suspect]
     Active Substance: AMPHOTERICIN B
     Indication: CANDIDA ENDOPHTHALMITIS
     Dosage: 5 ?G, QD (FOR 2 DAYS)
     Route: 050
  3. PREDNISOLONE ACETATE. [Suspect]
     Active Substance: PREDNISOLONE ACETATE
     Indication: CANDIDA ENDOPHTHALMITIS
     Dosage: UNK (4 TIMES A DAY)
     Route: 065
  4. AMPHOTERICIN B. [Suspect]
     Active Substance: AMPHOTERICIN B
     Indication: CANDIDA ENDOPHTHALMITIS
     Dosage: 5 MG/ML, UNK (6 TIMES A DAY (ON HOURLY))
     Route: 061
  5. VORICONAZOLE. [Suspect]
     Active Substance: VORICONAZOLE
     Dosage: 100 ?G, UNK (2 TO 3 TIMES PER WEEK FOR THE FIRST POSTOPERATIVE MONTH)
     Route: 050
  6. VORICONAZOLE. [Suspect]
     Active Substance: VORICONAZOLE
     Dosage: 10 MG/ML, UNK (TOTAL OF 3 MONTHS)
     Route: 065

REACTIONS (1)
  - Treatment failure [Unknown]
